FAERS Safety Report 8434706-4 (Version None)
Quarter: 2012Q2

REPORT INFORMATION
  Report Type: 
  Country: None (occurrence: None)
  Receive Date: 20120614
  Receipt Date: 20120611
  Transmission Date: 20120825
  Serious: Yes (Other)
  Sender: FDA-Public Use
  Company Number: US-BAYER-2012-058066

PATIENT
  Sex: Female

DRUGS (2)
  1. MIRENA [Suspect]
     Dosage: 20 ?G/D, CONT
     Dates: start: 20110901, end: 20120604
  2. CONTRACEPTIVES NOS [Concomitant]
     Dosage: UNK
     Dates: start: 20120604

REACTIONS (3)
  - VAGINAL HAEMORRHAGE [None]
  - COITAL BLEEDING [None]
  - METRORRHAGIA [None]
